FAERS Safety Report 18633308 (Version 1)
Quarter: 2020Q4

REPORT INFORMATION
  Report Type: Spontaneous
  Country: US (occurrence: US)
  Receive Date: 20201218
  Receipt Date: 20201218
  Transmission Date: 20210114
  Serious: No
  Sender: FDA-Public Use
  Company Number: US-REGENERON PHARMACEUTICALS, INC.-2020-12563

PATIENT

DRUGS (1)
  1. EYLEA [Suspect]
     Active Substance: AFLIBERCEPT
     Indication: MACULAR DEGENERATION
     Dosage: EVERY 7 WEEKS
     Route: 031
     Dates: start: 2019

REACTIONS (6)
  - Unevaluable event [Unknown]
  - Hypotension [Unknown]
  - Ill-defined disorder [Unknown]
  - Asthenia [Unknown]
  - Vertigo [Unknown]
  - Dizziness [Unknown]
